FAERS Safety Report 20795828 (Version 7)
Quarter: 2022Q3

REPORT INFORMATION
  Report Type: Report from Study
  Country: CA (occurrence: CA)
  Receive Date: 20220506
  Receipt Date: 20220829
  Transmission Date: 20221027
  Serious: Yes (Other)
  Sender: FDA-Public Use
  Company Number: CA-NOVARTISPH-NVSC2022CA060699

PATIENT
  Age: 60 Year
  Sex: Female

DRUGS (8)
  1. TAFINLAR [Suspect]
     Active Substance: DABRAFENIB MESYLATE
     Indication: Metastatic malignant melanoma
     Dosage: 150 MG, BID (2 TABS TAFINLAR TO 1 TAB TAFINLAR)
     Route: 048
     Dates: start: 20220309, end: 20220317
  2. TAFINLAR [Suspect]
     Active Substance: DABRAFENIB MESYLATE
     Dosage: 1 DOSAGE FORM, QD
     Route: 048
     Dates: start: 20220406
  3. TAFINLAR [Suspect]
     Active Substance: DABRAFENIB MESYLATE
     Dosage: 75 MG, BID
     Route: 048
  4. TAFINLAR [Suspect]
     Active Substance: DABRAFENIB MESYLATE
     Dosage: 100 MG, QD
     Route: 048
  5. TAFINLAR [Suspect]
     Active Substance: DABRAFENIB MESYLATE
     Dosage: UNK (2 TABS TAFINLAR TO 1 TAB TAFINLAR)
     Route: 048
     Dates: start: 20220309
  6. TAFINLAR [Suspect]
     Active Substance: DABRAFENIB MESYLATE
     Dosage: 100 MG, BID
     Route: 065
  7. MEKINIST [Suspect]
     Active Substance: TRAMETINIB DIMETHYL SULFOXIDE
     Indication: Metastatic malignant melanoma
     Dosage: 2 MG, QD
     Route: 048
     Dates: start: 20220309, end: 20220317
  8. MEKINIST [Suspect]
     Active Substance: TRAMETINIB DIMETHYL SULFOXIDE
     Dosage: 2 MG, QD
     Route: 048
     Dates: start: 20220309

REACTIONS (22)
  - Loss of consciousness [Unknown]
  - Tremor [Unknown]
  - Influenza like illness [Unknown]
  - Alopecia [Unknown]
  - Dry skin [Unknown]
  - Night sweats [Unknown]
  - Skin exfoliation [Recovering/Resolving]
  - Musculoskeletal discomfort [Unknown]
  - Headache [Unknown]
  - Vision blurred [Recovering/Resolving]
  - Erythema [Recovered/Resolved]
  - Nausea [Not Recovered/Not Resolved]
  - Decreased appetite [Not Recovered/Not Resolved]
  - Myalgia [Unknown]
  - Flushing [Unknown]
  - Fatigue [Unknown]
  - Pyrexia [Recovered/Resolved]
  - Product availability issue [Unknown]
  - Product dose omission issue [Unknown]
  - Product storage error [Unknown]
  - Peripheral swelling [Unknown]
  - Inflammation [Unknown]

NARRATIVE: CASE EVENT DATE: 20220309
